FAERS Safety Report 7496011-2 (Version None)
Quarter: 2011Q2

REPORT INFORMATION
  Report Type: 
  Country: None (occurrence: None)
  Receive Date: 20110513
  Receipt Date: 20110503
  Transmission Date: 20111010
  Serious: Yes (Death)
  Sender: FDA-Public Use
  Company Number: 201105007

PATIENT
  Age: 64 Year
  Sex: Male

DRUGS (4)
  1. ASPIRIN [Concomitant]
  2. IBUPROFEN [Concomitant]
  3. XIAFLEX [Suspect]
     Indication: DUPUYTREN'S CONTRACTURE
     Dosage: 0.58  MG, 1 IN 1 D, INTRALESIONAL
     Dates: start: 20100930, end: 20100930
  4. ZOCOR [Concomitant]

REACTIONS (4)
  - CONTUSION [None]
  - OEDEMA PERIPHERAL [None]
  - ROAD TRAFFIC ACCIDENT [None]
  - MULTIPLE INJURIES [None]
